FAERS Safety Report 6235704-1 (Version None)
Quarter: 2009Q2

REPORT INFORMATION
  Report Type: 
  Country: None (occurrence: None)
  Receive Date: 20090616
  Receipt Date: 20090602
  Transmission Date: 20091009
  Serious: Yes (Other)
  Sender: FDA-Public Use
  Company Number: 2009-198053-NL

PATIENT
  Sex: Female
  Weight: 89.4 kg

DRUGS (1)
  1. NUVARING [Suspect]
     Indication: CONTRACEPTION
     Dates: end: 20090520

REACTIONS (2)
  - DEEP VEIN THROMBOSIS [None]
  - FALL [None]
